FAERS Safety Report 25116648 (Version 1)
Quarter: 2025Q1

REPORT INFORMATION
  Report Type: Spontaneous
  Country: US (occurrence: US)
  Receive Date: 20250325
  Receipt Date: 20250325
  Transmission Date: 20250408
  Serious: No
  Sender: THE RITEDOSE CORP
  Company Number: US-THE RITEDOSE CORPORATION-2024RIT000026

PATIENT

DRUGS (1)
  1. IPRATROPIUM BROMIDE [Suspect]
     Active Substance: IPRATROPIUM BROMIDE
     Indication: Aspergillus infection
     Dosage: 1 VIAL QD
     Route: 055

REACTIONS (2)
  - Dental discomfort [Unknown]
  - Off label use [Unknown]
